FAERS Safety Report 4373667-4 (Version None)
Quarter: 2004Q1

REPORT INFORMATION
  Report Type: 
  Country: None (occurrence: None)
  Receive Date: 20040305
  Receipt Date: 20031124
  Transmission Date: 20041129
  Serious: Yes (Other)
  Sender: FDA-Public Use
  Company Number: 2003UW15620

PATIENT
  Age: 52 Year
  Sex: Female

DRUGS (4)
  1. CRESTOR [Suspect]
     Dosage: 10 MG QD PO
     Route: 048
     Dates: start: 20031122
  2. TENORMIN [Concomitant]
  3. LASIX [Concomitant]
  4. K-DUR 10 [Concomitant]

REACTIONS (1)
  - CYSTITIS [None]
